FAERS Safety Report 18262154 (Version 1)
Quarter: 2020Q3

REPORT INFORMATION
  Report Type: Report from Study
  Country: DE (occurrence: DE)
  Receive Date: 20200914
  Receipt Date: 20200914
  Transmission Date: 20201103
  Serious: Yes (Hospitalization)
  Sender: FDA-Public Use
  Company Number: DE-BRISTOL-MYERS SQUIBB COMPANY-BMS-2020-072289

PATIENT
  Age: 76 Year
  Sex: Male

DRUGS (4)
  1. IPILIMUMAB [Suspect]
     Active Substance: IPILIMUMAB
     Indication: MALIGNANT MELANOMA
     Dosage: 192 MILLIGRAM
     Route: 042
     Dates: start: 20190813, end: 20190924
  2. IMO?2125 [Suspect]
     Active Substance: TILSOTOLIMOD SODIUM
     Dosage: 8MG/1 ML
     Route: 036
     Dates: start: 20191015
  3. IPILIMUMAB [Suspect]
     Active Substance: IPILIMUMAB
     Dosage: 192 MG /100 ML
     Route: 042
     Dates: start: 20191015
  4. IMO?2125 [Suspect]
     Active Substance: TILSOTOLIMOD SODIUM
     Indication: MALIGNANT MELANOMA
     Dosage: 8 MILLIGRAM
     Route: 036
     Dates: start: 20190806

REACTIONS (1)
  - Chills [Recovered/Resolved]

NARRATIVE: CASE EVENT DATE: 20190924
